FAERS Safety Report 20935424 (Version 1)
Quarter: 2022Q2

REPORT INFORMATION
  Report Type: Spontaneous
  Country: FR (occurrence: FR)
  Receive Date: 20220609
  Receipt Date: 20220609
  Transmission Date: 20220721
  Serious: Yes (Hospitalization)
  Sender: FDA-Public Use
  Company Number: None

PATIENT
  Age: 19 Year
  Sex: Male
  Weight: 88 kg

DRUGS (12)
  1. DOXORUBICIN [Suspect]
     Active Substance: DOXORUBICIN
     Indication: Non-Hodgkin^s lymphoma
     Dosage: 30MG/M2 OR 60 MG , UNIT DOSE : 30 MG , FREQUENCY TIME : 1 TOTAL , DURATION : 1 DAYS
     Route: 041
     Dates: start: 20220413, end: 20220413
  2. DOXORUBICIN [Suspect]
     Active Substance: DOXORUBICIN
     Dosage: 30MG/M2 OR 60 MG, UNIT DOSE : 30 MG , FREQUENCY TIME : 1 TOTAL , DURATION : 1 DAYS
     Route: 041
     Dates: start: 20220330, end: 20220330
  3. DOXORUBICIN [Suspect]
     Active Substance: DOXORUBICIN
     Dosage: 30MG/M2 OR 60 MG , UNIT DOSE : 30 MG , FREQUENCY TIME : 1 TOTAL , DURATION : 1 DAYS
     Route: 041
     Dates: start: 20220406, end: 20220406
  4. VINCRISTINE SULFATE [Suspect]
     Active Substance: VINCRISTINE SULFATE
     Indication: Non-Hodgkin^s lymphoma
     Dosage: 1.5 MG/M2 OR 2 MG , UNIT DOSE : 2 MG , FREQUENCY TIME : 1 TOTAL , DURATION : 1 DAYS
     Route: 041
     Dates: start: 20220413, end: 20220413
  5. VINCRISTINE SULFATE [Suspect]
     Active Substance: VINCRISTINE SULFATE
     Dosage: 1.5 MG/M2 OR 2 MG, UNIT DOSE : 2 MG , FREQUENCY TIME : 1 TOTAL , DURATION : 1 DAYS
     Route: 041
     Dates: start: 20220330, end: 20220330
  6. VINCRISTINE SULFATE [Suspect]
     Active Substance: VINCRISTINE SULFATE
     Dosage: 1.5 MG/M2 OR 2 MG, UNIT DOSE : 2 MG , FREQUENCY TIME : 1 TOTAL , DURATION : 1 DAYS
     Route: 041
     Dates: start: 20220406, end: 20220406
  7. REMDESIVIR [Suspect]
     Active Substance: REMDESIVIR
     Indication: COVID-19
     Dosage: UNIT DOSE : 200 MG , FREQUENCY TIME : 1 DAYS , DURATION : 1 DAYS
     Route: 041
     Dates: start: 20220414, end: 20220414
  8. REMDESIVIR [Suspect]
     Active Substance: REMDESIVIR
     Dosage: UNIT DOSE : 100 MG , FREQUENCY TIME : 1 DAYS , DURATION : 1 DAYS
     Route: 041
     Dates: start: 20220415, end: 20220415
  9. PEGASPARGASE [Suspect]
     Active Substance: PEGASPARGASE
     Indication: Non-Hodgkin^s lymphoma
     Dosage: UNIT DOSE : 5000 IU (INTERNATIONAL UNIT)
     Dates: start: 20220325
  10. ESOMEPRAZOLE [Concomitant]
     Active Substance: ESOMEPRAZOLE
     Indication: Prophylaxis against gastrointestinal ulcer
     Dosage: 2 GEL / DAY OR 40MG , UNIT DOSE : 40 MG , FREQUENCY TIME : 1 DAYS , DURATION : 21 DAYS
     Dates: start: 20220323, end: 20220413
  11. DEXAMETHASONE [Concomitant]
     Active Substance: DEXAMETHASONE
     Indication: Non-Hodgkin^s lymphoma
     Dosage: 10MG/M2/D OR 20MG , UNIT DOSE : 20 MG , FREQUENCY TIME : 1 TOTAL , DURATION : 21 DAYS
     Dates: start: 20220323, end: 20220413
  12. BACTRIM [Concomitant]
     Active Substance: SULFAMETHOXAZOLE\TRIMETHOPRIM
     Indication: Antibiotic prophylaxis
     Dosage: 1CP 3 TIMES / WEEK
     Dates: start: 202110

REACTIONS (4)
  - Hypertriglyceridaemia [Unknown]
  - Arthralgia [Recovered/Resolved]
  - Haemophagocytic lymphohistiocytosis [Recovering/Resolving]
  - Seizure [Recovered/Resolved]

NARRATIVE: CASE EVENT DATE: 20220414
